FAERS Safety Report 5083019-X (Version None)
Quarter: 2006Q3

REPORT INFORMATION
  Report Type: 
  Country: None (occurrence: None)
  Receive Date: 20060814
  Receipt Date: 20060803
  Transmission Date: 20061208
  Serious: Yes (Other)
  Sender: FDA-Public Use
  Company Number: 2006-08-0154

PATIENT
  Sex: Female

DRUGS (1)
  1. CELESTAMINE TAB [Suspect]
     Dosage: ORAL
     Route: 048

REACTIONS (2)
  - DYSURIA [None]
  - URINARY RETENTION [None]
